FAERS Safety Report 24718035 (Version 1)
Quarter: 2024Q4

REPORT INFORMATION
  Report Type: Spontaneous
  Country: CA (occurrence: CA)
  Receive Date: 20241210
  Receipt Date: 20241210
  Transmission Date: 20250115
  Serious: Yes (Other)
  Sender: B BRAUN
  Company Number: CA-B.Braun Medical Inc.-2166825

PATIENT
  Age: 3 Day
  Sex: Male

DRUGS (10)
  1. HEPARIN SODIUM IN DEXTROSE [Suspect]
     Active Substance: HEPARIN SODIUM
     Indication: Peripheral ischaemia
  2. ACETAMINOPHEN [Concomitant]
     Active Substance: ACETAMINOPHEN
  3. TPN [Concomitant]
     Active Substance: AMINO ACIDS\DEXTROSE\ELECTROLYTES NOS\SOYBEAN OIL
  4. PIPERACILLIN SODIUM\TAZOBACTAM SODIUM [Concomitant]
     Active Substance: PIPERACILLIN SODIUM\TAZOBACTAM SODIUM
  5. NITROGLYCERIN [Concomitant]
     Active Substance: NITROGLYCERIN
  6. GENTAMICIN [Concomitant]
     Active Substance: GENTAMICIN
  7. Florababy [Concomitant]
  8. CEFAZOLIN [Concomitant]
     Active Substance: CEFAZOLIN
  9. CAFFEINE [Concomitant]
     Active Substance: CAFFEINE
  10. AMPICILLIN [Concomitant]
     Active Substance: AMPICILLIN

REACTIONS (6)
  - Anti factor X activity increased [Recovered/Resolved]
  - Respiratory depression [Recovered/Resolved]
  - Patent ductus arteriosus [Recovered/Resolved]
  - Fraction of inspired oxygen [Recovered/Resolved]
  - Pulmonary haemorrhage [Recovered/Resolved]
  - Haemorrhage [Recovered/Resolved]
